FAERS Safety Report 6580191-7 (Version None)
Quarter: 2010Q1

REPORT INFORMATION
  Report Type: 
  Country: None (occurrence: None)
  Receive Date: 20100212
  Receipt Date: 20100203
  Transmission Date: 20100710
  Serious: Yes (Hospitalization)
  Sender: FDA-Public Use
  Company Number: NL-MEDIMMUNE-MEDI-0010491

PATIENT
  Sex: Male
  Weight: 6.7 kg

DRUGS (2)
  1. SYNAGIS [Suspect]
     Route: 030
     Dates: start: 20090916, end: 20100106
  2. SYNAGIS [Suspect]
     Route: 030
     Dates: start: 20100203, end: 20100203

REACTIONS (7)
  - APNOEA [None]
  - COUGH [None]
  - PYREXIA [None]
  - RHINORRHOEA [None]
  - VIRAL INFECTION [None]
  - VOMITING [None]
  - WHEEZING [None]
